FAERS Safety Report 9074782 (Version 7)
Quarter: 2014Q2

REPORT INFORMATION
  Report Type: Spontaneous
  Country: US (occurrence: US)
  Receive Date: 20130129
  Receipt Date: 20140403
  Transmission Date: 20141212
  Serious: Yes (Hospitalization, Other)
  Sender: FDA-Public Use
  Company Number: US-009507513-1301USA013229

PATIENT
  Sex: Female
  Weight: 72.18 kg

DRUGS (3)
  1. FOSAMAX [Suspect]
     Indication: OSTEOPOROSIS
     Dosage: 70 MG, QW
     Route: 048
     Dates: start: 2001, end: 200806
  2. FOSAMAX [Suspect]
     Dosage: 10 MG, QD
     Route: 048
  3. ALENDRONATE SODIUM [Suspect]
     Indication: OSTEOPOROSIS
     Dosage: 70 MG, UNK
     Route: 048
     Dates: start: 20080617, end: 201104

REACTIONS (43)
  - Femur fracture [Unknown]
  - Intramedullary rod insertion [Unknown]
  - Low turnover osteopathy [Unknown]
  - Fall [Unknown]
  - Cardiac failure congestive [Unknown]
  - Tonsillectomy [Unknown]
  - Haemorrhage [Unknown]
  - Appendicectomy [Unknown]
  - Breast dysplasia [Unknown]
  - Bundle branch block left [Unknown]
  - Haemorrhoid operation [Unknown]
  - Hypercholesterolaemia [Unknown]
  - Essential hypertension [Unknown]
  - Hiatus hernia [Unknown]
  - Cardiac murmur [Unknown]
  - Peptic ulcer [Unknown]
  - Arthritis [Unknown]
  - Cardiomyopathy [Unknown]
  - Aortic stenosis [Unknown]
  - Insomnia [Unknown]
  - Neuropathy peripheral [Unknown]
  - Fatigue [Unknown]
  - Muscular weakness [Unknown]
  - Dyspnoea [Unknown]
  - Micturition urgency [Unknown]
  - Chest expansion decreased [Unknown]
  - Wrist fracture [Unknown]
  - Respiratory tract congestion [Unknown]
  - Sinus congestion [Unknown]
  - Mitral valve disease [Unknown]
  - Aortic valve disease [Unknown]
  - Palpitations [Unknown]
  - Cough [Unknown]
  - Oedema [Unknown]
  - Pain in extremity [Unknown]
  - Vomiting [Unknown]
  - Nausea [Unknown]
  - Constipation [Unknown]
  - Back pain [Unknown]
  - Dysphagia [Unknown]
  - Gastrooesophageal reflux disease [Unknown]
  - Dizziness [Unknown]
  - Nausea [Unknown]
